FAERS Safety Report 14114015 (Version 3)
Quarter: 2018Q2

REPORT INFORMATION
  Report Type: Report from Study
  Country: None (occurrence: GT)
  Receive Date: 20171023
  Receipt Date: 20180503
  Transmission Date: 20180711
  Serious: Yes (Hospitalization, Other)
  Sender: FDA-Public Use
  Company Number: GT-ABBVIE-17S-069-2136428-00

PATIENT
  Sex: Male

DRUGS (5)
  1. ZEMPLAR [Suspect]
     Active Substance: PARICALCITOL
     Indication: HYPERPARATHYROIDISM SECONDARY
     Route: 042
     Dates: start: 20160802
  2. PLENDIL [Suspect]
     Active Substance: FELODIPINE
     Indication: HYPERTENSION
     Route: 065
  3. IRON [Concomitant]
     Active Substance: IRON
     Indication: PRODUCT USED FOR UNKNOWN INDICATION
  4. APROVEL [Concomitant]
     Active Substance: IRBESARTAN
     Indication: HYPERTENSION
     Route: 048
  5. ERYTHROPOIETIN [Concomitant]
     Active Substance: ERYTHROPOIETIN
     Indication: HAEMOGLOBIN DECREASED
     Dosage: AMPOULE
     Route: 042

REACTIONS (12)
  - Haemoglobin decreased [Not Recovered/Not Resolved]
  - Head injury [Recovering/Resolving]
  - Joint injury [Recovering/Resolving]
  - Limb injury [Not Recovered/Not Resolved]
  - Mobility decreased [Not Recovered/Not Resolved]
  - Pain [Not Recovered/Not Resolved]
  - Hip fracture [Recovering/Resolving]
  - Musculoskeletal disorder [Not Recovered/Not Resolved]
  - Dysuria [Recovered/Resolved]
  - Fall [Recovering/Resolving]
  - Hip fracture [Not Recovered/Not Resolved]
  - Micturition urgency [Recovered/Resolved]

NARRATIVE: CASE EVENT DATE: 20171111
